FAERS Safety Report 5110539-1 (Version None)
Quarter: 2006Q3

REPORT INFORMATION
  Report Type: 
  Country: None (occurrence: None)
  Receive Date: 20060913
  Receipt Date: 20060829
  Transmission Date: 20061208
  Serious: Yes (Hospitalization, Other)
  Sender: FDA-Public Use
  Company Number: 2006BH011985

PATIENT
  Age: 3 Year
  Sex: Male

DRUGS (5)
  1. IVEEGAM [Suspect]
     Indication: KAWASAKI'S DISEASE
     Dates: start: 20060810, end: 20060811
  2. IVEEGAM [Suspect]
     Indication: KAWASAKI'S DISEASE
     Dates: start: 20060811, end: 20060812
  3. REMICADE [Concomitant]
  4. STEROIDS [Concomitant]
  5. ASPIRIN [Concomitant]

REACTIONS (2)
  - DRUG INEFFECTIVE [None]
  - PYREXIA [None]
